FAERS Safety Report 7354930-1 (Version None)
Quarter: 2011Q1

REPORT INFORMATION
  Report Type: 
  Country: None (occurrence: None)
  Receive Date: 20110225
  Receipt Date: 20110120
  Transmission Date: 20110831
  Serious: No
  Sender: FDA-Public Use
  Company Number: 321055

PATIENT
  Age: 50 Year
  Sex: Female

DRUGS (13)
  1. TRIAMTERENE (TRIAMTERENE) [Concomitant]
  2. OMEPRAZOLE [Concomitant]
  3. KLONOPIN [Concomitant]
  4. POTASSIUM (POTASSIUM) [Concomitant]
  5. GLIMEPIRIDE [Concomitant]
  6. CODEINE (CODEINE) [Concomitant]
  7. VICTOZA [Suspect]
     Indication: TYPE 2 DIABETES MELLITUS
     Dosage: 0.6 MG, QD, SUBCUTANEOUS, 1.2 MG, QD, SUBCUTANEOUS
     Route: 058
     Dates: start: 20100922, end: 20101021
  8. VICTOZA [Suspect]
     Indication: TYPE 2 DIABETES MELLITUS
     Dosage: 0.6 MG, QD, SUBCUTANEOUS, 1.2 MG, QD, SUBCUTANEOUS
     Route: 058
     Dates: start: 20101022
  9. VICTOZA [Suspect]
  10. LISINOPRIL [Concomitant]
  11. SIMVASTATIN [Concomitant]
  12. TYLENOL W/ CODEINE NO. 3 [Concomitant]
  13. MULTIVITAMINS (ASCORBIC ACID, ERGOCALCIFEROL, FOLIC ACID, NICOTINAMIDE [Concomitant]

REACTIONS (4)
  - HUNGER [None]
  - DRY SKIN [None]
  - INJECTION SITE REACTION [None]
  - FEELING JITTERY [None]
